FAERS Safety Report 8029540-3 (Version None)
Quarter: 2012Q1

REPORT INFORMATION
  Report Type: 
  Country: None (occurrence: None)
  Receive Date: 20120109
  Receipt Date: 20111228
  Transmission Date: 20120608
  Serious: Yes (Other)
  Sender: FDA-Public Use
  Company Number: ES-AMGEN-ESPSP2011069958

PATIENT
  Age: 50 Year
  Sex: Male

DRUGS (2)
  1. ENBREL [Suspect]
     Indication: PSORIATIC ARTHROPATHY
     Dosage: 50 MG, WEEKLY
     Dates: start: 20110201, end: 20110301
  2. ARAVA [Concomitant]
     Dosage: 20 UNK, UNK

REACTIONS (3)
  - GENERALISED ERYTHEMA [None]
  - PHARYNGEAL OEDEMA [None]
  - HEADACHE [None]
